FAERS Safety Report 14627972 (Version 7)
Quarter: 2018Q3

REPORT INFORMATION
  Report Type: Spontaneous
  Country: US (occurrence: US)
  Receive Date: 20180312
  Receipt Date: 20180928
  Transmission Date: 20181010
  Serious: Yes (Disabling)
  Sender: FDA-Public Use
  Company Number: US-ACTELION-A-US2018-168731

PATIENT
  Age: 16 Year
  Sex: Female

DRUGS (7)
  1. OPSUMIT [Suspect]
     Active Substance: MACITENTAN
     Indication: PULMONARY ARTERIAL HYPERTENSION
     Dosage: 10 MG, QD
     Route: 048
     Dates: start: 20170831
  2. ADCIRCA [Concomitant]
     Active Substance: TADALAFIL
     Dosage: 40 MG, QD
     Route: 048
     Dates: start: 20100707
  3. AMLODIPINE [Concomitant]
     Active Substance: AMLODIPINE BESYLATE
     Dosage: 5 MG, BID
  4. ASPIRIN. [Concomitant]
     Active Substance: ASPIRIN
     Dosage: 81 MG, QD
  5. REMODULIN [Concomitant]
     Active Substance: TREPROSTINIL
     Dosage: 103 NG/KG, PER MIN
     Route: 058
     Dates: start: 20160209
  6. REMODULIN [Concomitant]
     Active Substance: TREPROSTINIL
     Dosage: UNK
     Route: 042
  7. MARINOL [Concomitant]
     Active Substance: DRONABINOL
     Dosage: 5 MG, BID
     Dates: start: 20171103

REACTIONS (14)
  - Catheter site pruritus [Unknown]
  - Cardiac disorder [Unknown]
  - Dizziness [Unknown]
  - Swelling [Unknown]
  - Fatigue [Unknown]
  - Pulmonary arterial hypertension [Unknown]
  - Drug ineffective [Unknown]
  - Chest pain [Unknown]
  - Nausea [Unknown]
  - Disease progression [Unknown]
  - Dyspnoea [Unknown]
  - Oxygen therapy [Unknown]
  - Extrasystoles [Not Recovered/Not Resolved]
  - Condition aggravated [Unknown]

NARRATIVE: CASE EVENT DATE: 20180115
